FAERS Safety Report 8695762 (Version 3)
Quarter: 2013Q4

REPORT INFORMATION
  Report Type: Spontaneous
  Country: US (occurrence: US)
  Receive Date: 20120731
  Receipt Date: 20131108
  Transmission Date: 20140711
  Serious: Yes (Death, Hospitalization)
  Sender: FDA-Public Use
  Company Number: US-009507513-1207USA009656

PATIENT
  Age: 58 Year
  Sex: Male

DRUGS (11)
  1. ZOCOR [Suspect]
     Dosage: 20 MG, UNK
     Route: 048
  2. CYCLOSPORINE [Concomitant]
  3. ACETAMINOPHEN (+) CODEINE PHOSPHATE [Concomitant]
  4. DOMPERIDONE [Concomitant]
  5. NOVOMIX [Concomitant]
  6. FERROUS FUMARATE [Concomitant]
  7. FUROSEMIDE [Concomitant]
  8. LEVOTHYROXINE SODIUM [Concomitant]
  9. LOPERAMIDE HYDROCHLORIDE [Concomitant]
  10. ASPIRIN [Concomitant]
  11. DIHYDROERGOTAMINE MESYLATE [Concomitant]

REACTIONS (4)
  - Kidney transplant rejection [Fatal]
  - Hyperkalaemia [Fatal]
  - Transplant failure [Fatal]
  - Rhabdomyolysis [Fatal]
